FAERS Safety Report 25700838 (Version 1)
Quarter: 2025Q3

REPORT INFORMATION
  Report Type: Spontaneous
  Country: US (occurrence: US)
  Receive Date: 20250819
  Receipt Date: 20250819
  Transmission Date: 20251021
  Serious: Yes (Life-Threatening, Hospitalization, Other)
  Sender: ARTHUR GROUP LLC
  Company Number: US-ARTHUR-2025AGLIT00007

PATIENT
  Age: 75 Year
  Sex: Male

DRUGS (1)
  1. SEVELAMER [Suspect]
     Active Substance: SEVELAMER
     Indication: Product used for unknown indication
     Route: 048

REACTIONS (2)
  - Foreign body aspiration [Unknown]
  - Tachycardia [Unknown]
